FAERS Safety Report 12862985 (Version 3)
Quarter: 2017Q1

REPORT INFORMATION
  Report Type: Spontaneous
  Country: JP (occurrence: JP)
  Receive Date: 20161019
  Receipt Date: 20170313
  Transmission Date: 20170428
  Serious: Yes (Death, Hospitalization, Other)
  Sender: FDA-Public Use
  Company Number: JP-UCBSA-2016035299

PATIENT
  Age: 89 Year
  Sex: Male

DRUGS (5)
  1. SHAKUYAKUKANZOTO [Suspect]
     Active Substance: HERBALS
     Indication: HICCUPS
     Route: 048
  2. FUROSEMIDE. [Concomitant]
     Active Substance: FUROSEMIDE
     Indication: PRODUCT USED FOR UNKNOWN INDICATION
  3. TANATRIL [Suspect]
     Active Substance: IMIDAPRIL
     Indication: PRODUCT USED FOR UNKNOWN INDICATION
     Dosage: UNK
     Route: 048
     Dates: start: 20160401, end: 20160803
  4. CLARITIN [Concomitant]
     Active Substance: LORATADINE
     Indication: PRODUCT USED FOR UNKNOWN INDICATION
     Dosage: UNK
     Route: 048
  5. E KEPPRA [Suspect]
     Active Substance: LEVETIRACETAM
     Indication: EPILEPSY
     Dosage: DAILY DOSE :1000 MG
     Route: 048
     Dates: start: 20160704

REACTIONS (2)
  - Cardiac failure [Fatal]
  - Hiccups [Unknown]

NARRATIVE: CASE EVENT DATE: 20160801
